FAERS Safety Report 9009267 (Version 2)
Quarter: 2013Q1

REPORT INFORMATION
  Report Type: Spontaneous
  Country: US (occurrence: US)
  Receive Date: 20130111
  Receipt Date: 20130208
  Transmission Date: 20140127
  Serious: Yes (Other)
  Sender: FDA-Public Use
  Company Number: US-GLAXOSMITHKLINE-A1007894A

PATIENT
  Sex: Male

DRUGS (4)
  1. WELLBUTRIN [Suspect]
     Indication: DEPRESSION
  2. ZOLOFT [Suspect]
     Indication: DEPRESSION
  3. CONCERTA [Suspect]
     Indication: FATIGUE
     Dosage: 18MG PER DAY
  4. KLONOPIN [Suspect]
     Indication: ANXIETY
     Dosage: 1MG SEE DOSAGE TEXT

REACTIONS (5)
  - Pituitary tumour [Unknown]
  - Peyronie^s disease [Unknown]
  - Erectile dysfunction [Unknown]
  - Loss of libido [Unknown]
  - Feeling abnormal [Unknown]
